FAERS Safety Report 4400035-9 (Version None)
Quarter: 2004Q3

REPORT INFORMATION
  Report Type: 
  Country: None (occurrence: None)
  Receive Date: 20040714
  Receipt Date: 20040702
  Transmission Date: 20050211
  Serious: Yes (Death)
  Sender: FDA-Public Use
  Company Number: JP-JNJFOC-20040604344

PATIENT
  Age: 81 Year
  Sex: Female

DRUGS (9)
  1. FENTANYL [Suspect]
     Indication: CANCER PAIN
     Dosage: SEE IMAGE
     Route: 062
     Dates: start: 20040510, end: 20040513
  2. FENTANYL [Suspect]
     Indication: CANCER PAIN
     Dosage: SEE IMAGE
     Route: 062
     Dates: start: 20040513, end: 20040517
  3. CEFOZOPRAN HYDROCHLORIDE (CEFOZOPRAN HYDROCHLORIDE) [Concomitant]
  4. MORPHINE [Concomitant]
  5. PIPERACILLIN SODIUM [Concomitant]
  6. METOCLOPRAMIDE [Concomitant]
  7. PANTETHINE (PANTETHINE) [Concomitant]
  8. DIFLUCAN [Concomitant]
  9. SULPYRINE (METAMIZOLE SODIUM) [Concomitant]

REACTIONS (3)
  - CONSTIPATION [None]
  - RESPIRATORY FAILURE [None]
  - SOMNOLENCE [None]
